FAERS Safety Report 14813206 (Version 1)
Quarter: 2018Q2

REPORT INFORMATION
  Report Type: Spontaneous
  Country: US (occurrence: US)
  Receive Date: 20180426
  Receipt Date: 20180426
  Transmission Date: 20180711
  Serious: No
  Sender: FDA-Public Use
  Company Number: US-ELI_LILLY_AND_COMPANY-US201804012595

PATIENT
  Sex: Female

DRUGS (2)
  1. HUMALOG MIX75/25 [Suspect]
     Active Substance: INSULIN LISPRO
     Indication: TYPE 2 DIABETES MELLITUS
     Dosage: 36 U, BID (MORNING AND NIGHT)
     Route: 058
  2. HUMALOG MIX75/25 [Suspect]
     Active Substance: INSULIN LISPRO
     Dosage: 36 U, BID (MORNING AND NIGHT)
     Route: 058

REACTIONS (3)
  - Injury associated with device [Recovered/Resolved]
  - Pain [Unknown]
  - Drug dose omission [Recovered/Resolved]
